FAERS Safety Report 6838862-0 (Version None)
Quarter: 2010Q3

REPORT INFORMATION
  Report Type: 
  Country: None (occurrence: None)
  Receive Date: 20100713
  Receipt Date: 20070810
  Transmission Date: 20110219
  Serious: Yes (Other)
  Sender: FDA-Public Use
  Company Number: US-PFIZER INC-2007045365

PATIENT
  Age: 63 Year
  Sex: Female

DRUGS (3)
  1. CHANTIX [Suspect]
     Indication: SMOKING CESSATION THERAPY
     Dates: start: 20070301, end: 20070401
  2. PROZAC [Concomitant]
  3. FOSAMAX [Concomitant]

REACTIONS (17)
  - AGGRESSION [None]
  - ANTISOCIAL BEHAVIOUR [None]
  - ANXIETY [None]
  - ARTHRALGIA [None]
  - CHILLS [None]
  - CONFUSIONAL STATE [None]
  - CONSTIPATION [None]
  - DEPRESSION [None]
  - FEAR [None]
  - HALLUCINATION [None]
  - HYPOVENTILATION [None]
  - ILL-DEFINED DISORDER [None]
  - INSOMNIA [None]
  - NIGHTMARE [None]
  - TONGUE DISCOLOURATION [None]
  - URTICARIA [None]
  - VISION BLURRED [None]
